FAERS Safety Report 14749930 (Version 2)
Quarter: 2018Q2

REPORT INFORMATION
  Report Type: Spontaneous
  Country: US (occurrence: US)
  Receive Date: 20180412
  Receipt Date: 20180509
  Transmission Date: 20180711
  Serious: No
  Sender: FDA-Public Use
  Company Number: US-TEVA-2018-US-879503

PATIENT
  Sex: Female

DRUGS (6)
  1. METOPROLOL. [Concomitant]
     Active Substance: METOPROLOL
  2. UBIQUINOL [Concomitant]
     Active Substance: UBIQUINOL
  3. SYNRIBO [Suspect]
     Active Substance: OMACETAXINE MEPESUCCINATE
     Indication: CHRONIC MYELOID LEUKAEMIA
     Dosage: 4 MILLIGRAM DAILY; 2MG/0.57ML ONCE DAILY
     Route: 065
     Dates: start: 20171208, end: 20171222
  4. XARELTO [Concomitant]
     Active Substance: RIVAROXABAN
  5. LATANOPROST. [Concomitant]
     Active Substance: LATANOPROST
  6. VITAMIN D3 [Concomitant]
     Active Substance: CHOLECALCIFEROL

REACTIONS (3)
  - Haemoglobin decreased [Recovered/Resolved]
  - Alopecia [Recovering/Resolving]
  - White blood cell count decreased [Recovered/Resolved]
